FAERS Safety Report 8587228-4 (Version None)
Quarter: 2012Q3

REPORT INFORMATION
  Report Type: 
  Country: None (occurrence: None)
  Receive Date: 20120810
  Receipt Date: 20110812
  Transmission Date: 20120928
  Serious: No
  Sender: FDA-Public Use
  Company Number: US-ASTRAZENECA-2011SE49024

PATIENT
  Sex: Female

DRUGS (21)
  1. PLAVIX [Concomitant]
  2. FLUCONAZOLE [Concomitant]
  3. PANTOPRAZOLE SOD DR [Concomitant]
  4. POLYETHYLENE GLYCOL [Concomitant]
  5. TERCONAZOLE [Concomitant]
  6. KETOCONAZOLE [Concomitant]
  7. ARIMIDEX [Suspect]
     Route: 048
  8. AMITIZA [Concomitant]
  9. NYSTATIN-TRIAMCINOLONE [Concomitant]
  10. LESCOL XL [Concomitant]
  11. BISACODYL BC [Concomitant]
  12. CANASA [Concomitant]
  13. PROPOXYPHENE HCL AND ACETAMINOPHEN [Concomitant]
  14. GABAPENTIN [Concomitant]
  15. NEXIUM [Suspect]
     Route: 048
  16. ALPRAZOLAM [Concomitant]
  17. NADOLOL [Concomitant]
  18. CLINDAMYCIN HCL [Concomitant]
  19. CEPHALEXIN [Concomitant]
  20. HYDROCODON-ACETAMINOPHEN [Concomitant]
  21. CIPROFLOXACIN [Concomitant]

REACTIONS (2)
  - ANXIETY [None]
  - PAIN [None]
